FAERS Safety Report 8579896-8 (Version None)
Quarter: 2012Q3

REPORT INFORMATION
  Report Type: 
  Country: None (occurrence: None)
  Receive Date: 20120808
  Receipt Date: 20120804
  Transmission Date: 20120928
  Serious: Yes (Death)
  Sender: FDA-Public Use
  Company Number: PHHO2012IN009718

PATIENT
  Sex: Male
  Weight: 73 kg

DRUGS (14)
  1. CARDIOVAS [Concomitant]
     Indication: CARDIOVASCULAR DISORDER
     Dosage: 10 OD
     Dates: start: 20110502
  2. DYTOR [Concomitant]
     Indication: CARDIAC FAILURE
     Dosage: 20 1/2 BID
     Dates: start: 20110327
  3. DYTOR [Concomitant]
     Indication: DIURETIC THERAPY
  4. VALSARTAN [Suspect]
     Dosage: UNK
     Dates: start: 20120327
  5. LANOXIN [Concomitant]
     Indication: CARDIAC FAILURE
     Dosage: 0.25 OD
     Dates: start: 20110502
  6. VALSARTAN [Suspect]
     Indication: CARDIAC FAILURE CHRONIC
     Dosage: CODE NOT BROKEN
     Route: 048
     Dates: start: 20111123, end: 20120521
  7. DIGOXIN [Suspect]
     Dosage: UNK
     Dates: start: 20110505
  8. CARVEDILOL [Concomitant]
     Indication: CARDIOVASCULAR DISORDER
     Dosage: 10 OD
     Dates: start: 20110502
  9. ECOSPRIN [Concomitant]
     Indication: CARDIOVASCULAR DISORDER
     Dosage: 75 MG, QD
     Dates: start: 20110903
  10. GLIMEPIRIDE W/METFORMIN [Concomitant]
     Indication: DIABETES MELLITUS
     Dosage: 2 OD
     Dates: start: 20110502
  11. ENALAPRIL MALEATE [Suspect]
     Indication: CARDIAC FAILURE CHRONIC
     Dosage: CODE NOT BROKEN
     Route: 048
     Dates: start: 20111123, end: 20120521
  12. BLINDED NO TREATMENT RECEIVED [Suspect]
     Dosage: UNK
     Dates: start: 20120327
  13. BLINDED NO TREATMENT RECEIVED [Suspect]
     Indication: CARDIAC FAILURE CHRONIC
     Dosage: CODE NOT BROKEN
     Route: 048
     Dates: start: 20111123, end: 20120521
  14. ENALAPRIL MALEATE [Suspect]
     Dosage: UNK
     Dates: start: 20120327

REACTIONS (3)
  - VOMITING [None]
  - NAUSEA [None]
  - JAUNDICE [None]
